FAERS Safety Report 17232396 (Version 1)
Quarter: 2020Q1

REPORT INFORMATION
  Report Type: Spontaneous
  Country: US (occurrence: US)
  Receive Date: 20200103
  Receipt Date: 20200103
  Transmission Date: 20200409
  Serious: Yes (Other)
  Sender: FDA-Public Use
  Company Number: US-SA-2019SA361710

PATIENT
  Age: 79 Year
  Sex: Female
  Weight: 50 kg

DRUGS (17)
  1. PLAVIX [Suspect]
     Active Substance: CLOPIDOGREL BISULFATE
     Indication: ANTICOAGULANT THERAPY
     Dosage: 75 MG, QD
     Route: 065
     Dates: start: 200610
  2. SPIRONOLACTONE. [Concomitant]
     Active Substance: SPIRONOLACTONE
     Dosage: 25 MG, TID
     Route: 065
  3. PLAVIX [Suspect]
     Active Substance: CLOPIDOGREL BISULFATE
     Dosage: UNK UNK, UNK
     Route: 065
     Dates: start: 2018
  4. METHOCARBAMOL. [Concomitant]
     Active Substance: METHOCARBAMOL
     Dosage: 500 MG, PRN
     Route: 065
  5. LECITHIN [Concomitant]
     Active Substance: LECITHIN
  6. OLIVE LEAF EXTRACT [Concomitant]
  7. CELEBREX [Concomitant]
     Active Substance: CELECOXIB
     Dosage: 20 MG, QD
     Route: 065
  8. GINGER [ZINGIBER OFFICINALE] [Concomitant]
     Active Substance: GINGER
  9. VITAMIN C [Concomitant]
     Active Substance: ASCORBIC ACID
  10. TOPROL XL [Concomitant]
     Active Substance: METOPROLOL SUCCINATE
     Dosage: 25 MG, BID
     Route: 065
  11. PANTOPRAZOLE [Concomitant]
     Active Substance: PANTOPRAZOLE
     Dosage: 40 MG, QD
     Route: 065
  12. CLONIDINE. [Concomitant]
     Active Substance: CLONIDINE
     Dosage: 1 MG, TID
     Route: 065
  13. MAGNESIUM [Concomitant]
     Active Substance: MAGNESIUM
  14. VENASTAT [Concomitant]
     Active Substance: HORSE CHESTNUT
  15. POTASSIUM [Concomitant]
     Active Substance: POTASSIUM
     Dosage: UNK UNK, UNK
  16. ARMOUR THYROID [Concomitant]
     Active Substance: THYROID, PORCINE
     Dosage: 40 MG, QD
     Route: 065
  17. NATTOKINASE [Concomitant]
     Active Substance: NATTOKINASE

REACTIONS (4)
  - Nerve injury [Unknown]
  - Eye haemorrhage [Unknown]
  - Brain stem haemorrhage [Unknown]
  - Herpes zoster [Unknown]
